FAERS Safety Report 11858439 (Version 1)
Quarter: 2015Q4

REPORT INFORMATION
  Report Type: Spontaneous
  Country: GB (occurrence: GB)
  Receive Date: 20151222
  Receipt Date: 20151222
  Transmission Date: 20160305
  Serious: Yes (Other)
  Sender: FDA-Public Use
  Company Number: GB-WATSON-2015-16048

PATIENT
  Sex: Male

DRUGS (1)
  1. OXYBUTYNIN [Suspect]
     Active Substance: OXYBUTYNIN
     Indication: MICTURITION DISORDER
     Dosage: 2.5 MG, DAILY
     Route: 048
     Dates: start: 201312

REACTIONS (3)
  - Hyperhidrosis [None]
  - Constipation [Unknown]
  - Painful defaecation [Unknown]
